FAERS Safety Report 12497228 (Version 2)
Quarter: 2017Q1

REPORT INFORMATION
  Report Type: Spontaneous
  Country: DE (occurrence: DE)
  Receive Date: 20160624
  Receipt Date: 20170109
  Transmission Date: 20170428
  Serious: Yes (Other)
  Sender: FDA-Public Use
  Company Number: DE-CIPLA LTD.-2016DE08106

PATIENT

DRUGS (6)
  1. EPIRUBICIN [Suspect]
     Active Substance: EPIRUBICIN
     Dosage: 80 MG / STAPLES
     Route: 065
  2. CAPECITABINE. [Suspect]
     Active Substance: CAPECITABINE
     Dosage: 2650 MG / STAPLES
     Route: 065
     Dates: start: 20130224, end: 20130224
  3. CAPECITABINE. [Suspect]
     Active Substance: CAPECITABINE
     Dosage: 2650 MG / STAPLES
     Route: 065
  4. EPIRUBICIN [Suspect]
     Active Substance: EPIRUBICIN
     Dosage: 80 MG / STAPLES
     Route: 065
  5. CISPLATIN. [Suspect]
     Active Substance: CISPLATIN
     Dosage: 95 MG / STAPLES
     Route: 065
  6. CISPLATIN. [Suspect]
     Active Substance: CISPLATIN
     Dosage: 95 MG / STAPLES
     Route: 065

REACTIONS (5)
  - Neutropenic infection [Recovered/Resolved]
  - Dysphagia [Recovered/Resolved]
  - Abdominal pain [Recovered/Resolved]
  - C-reactive protein increased [Recovered/Resolved]
  - Asthenia [Recovered/Resolved]

NARRATIVE: CASE EVENT DATE: 20130227
